FAERS Safety Report 13186546 (Version 4)
Quarter: 2025Q2

REPORT INFORMATION
  Report Type: Spontaneous
  Country: US (occurrence: US)
  Receive Date: 20170205
  Receipt Date: 20250417
  Transmission Date: 20250716
  Serious: No
  Sender: BIOGEN
  Company Number: US-BIOGEN-2017BI00349575

PATIENT
  Age: 48 Year
  Sex: Female

DRUGS (1)
  1. TECFIDERA [Suspect]
     Active Substance: DIMETHYL FUMARATE
     Indication: Multiple sclerosis
     Route: 050
     Dates: start: 20170124, end: 20180906

REACTIONS (7)
  - Drug ineffective [Unknown]
  - Menopausal symptoms [Not Recovered/Not Resolved]
  - Tremor [Not Recovered/Not Resolved]
  - Weight increased [Not Recovered/Not Resolved]
  - Multiple sclerosis relapse [Not Recovered/Not Resolved]
  - Drug intolerance [Unknown]
  - Vomiting [Recovered/Resolved]

NARRATIVE: CASE EVENT DATE: 20170124
